FAERS Safety Report 12317299 (Version 1)
Quarter: 2016Q2

REPORT INFORMATION
  Report Type: Spontaneous
  Country: US (occurrence: US)
  Receive Date: 20160429
  Receipt Date: 20160429
  Transmission Date: 20160815
  Serious: No
  Sender: FDA-Public Use
  Company Number: US-BAYER-2016-083140

PATIENT

DRUGS (1)
  1. MIRALAX [Suspect]
     Active Substance: POLYETHYLENE GLYCOL 3350
     Dosage: DOCTOR RECOMMENDED: 15 CAPFULS MIXED WITH 64 OUNCES OF GATORADE, CONSUME A 5 HRS PERIOD TIME FRAME

REACTIONS (1)
  - Wrong technique in product usage process [None]
